FAERS Safety Report 18318622 (Version 1)
Quarter: 2020Q3

REPORT INFORMATION
  Report Type: Spontaneous
  Country: US (occurrence: US)
  Receive Date: 20200928
  Receipt Date: 20200928
  Transmission Date: 20201103
  Serious: No
  Sender: FDA-Public Use
  Company Number: US-JNJFOC-20200942728

PATIENT
  Age: 36 Year
  Sex: Male

DRUGS (2)
  1. LUMATEPERONE. [Suspect]
     Active Substance: LUMATEPERONE
     Indication: SCHIZOPHRENIA
     Route: 048
     Dates: start: 20200209
  2. RISPERDAL [Suspect]
     Active Substance: RISPERIDONE
     Indication: SCHIZOPHRENIA
     Route: 065
     Dates: start: 20200209

REACTIONS (4)
  - Asthenopia [Unknown]
  - Sedation [Unknown]
  - Somnolence [Unknown]
  - Lacrimation increased [Unknown]
